FAERS Safety Report 15074346 (Version 1)
Quarter: 2018Q2

REPORT INFORMATION
  Report Type: Spontaneous
  Country: FR (occurrence: FR)
  Receive Date: 20180627
  Receipt Date: 20180627
  Transmission Date: 20180711
  Serious: Yes (Other)
  Sender: FDA-Public Use
  Company Number: FR-ROCHE-2145193

PATIENT
  Age: 39 Year
  Sex: Female

DRUGS (3)
  1. HERCEPTIN [Suspect]
     Active Substance: TRASTUZUMAB
     Indication: BREAST CANCER
     Route: 065
  2. TAMOXIFEN [Concomitant]
     Active Substance: TAMOXIFEN
  3. ENANTONE LP [Concomitant]
     Active Substance: LEUPROLIDE ACETATE

REACTIONS (2)
  - Cardiac disorder [Unknown]
  - Pulmonary embolism [Recovered/Resolved]
